FAERS Safety Report 15551115 (Version 1)
Quarter: 2018Q4

REPORT INFORMATION
  Report Type: Spontaneous
  Country: NZ (occurrence: NZ)
  Receive Date: 20181025
  Receipt Date: 20181025
  Transmission Date: 20190205
  Serious: Yes (Other)
  Sender: FDA-Public Use
  Company Number: NZ-ASTRAZENECA-2018SF38594

PATIENT
  Sex: Male

DRUGS (1)
  1. TICAGRELOR. [Suspect]
     Active Substance: TICAGRELOR
     Dosage: 90, UNKNOWN
     Route: 048

REACTIONS (2)
  - Ventricular asystole [Unknown]
  - Conduction disorder [Unknown]
